FAERS Safety Report 6173595-8 (Version None)
Quarter: 2009Q2

REPORT INFORMATION
  Report Type: 
  Country: None (occurrence: None)
  Receive Date: 20090429
  Receipt Date: 20090429
  Transmission Date: 20091009
  Serious: No
  Sender: FDA-Public Use
  Company Number: None

PATIENT
  Sex: Male
  Weight: 89.8122 kg

DRUGS (1)
  1. NOVOLOG [Suspect]
     Indication: DIABETES MELLITUS
     Dosage: 10-14 UNITS 3 X DAILY
     Dates: start: 20090408

REACTIONS (2)
  - LIQUID PRODUCT PHYSICAL ISSUE [None]
  - PRODUCT DEPOSIT [None]
